FAERS Safety Report 24625113 (Version 3)
Quarter: 2025Q1

REPORT INFORMATION
  Report Type: Report from Study
  Country: US (occurrence: US)
  Receive Date: 20241115
  Receipt Date: 20250117
  Transmission Date: 20250408
  Serious: Yes (Hospitalization, Other)
  Sender: RECORDATI
  Company Number: US-ORPHANEU-2024007837

PATIENT

DRUGS (34)
  1. CYSTADANE [Suspect]
     Active Substance: BETAINE
     Indication: Vitamin B12 deficiency
     Dates: start: 2011
  2. CYSTADANE [Suspect]
     Active Substance: BETAINE
     Route: 048
     Dates: start: 20140701, end: 201407
  3. CYSTADANE [Suspect]
     Active Substance: BETAINE
     Route: 048
     Dates: start: 20140707, end: 201408
  4. CYSTADANE [Suspect]
     Active Substance: BETAINE
     Dosage: 3 GRAM, BID, ORAL POWDER
     Dates: start: 20140806, end: 201502
  5. CYSTADANE [Suspect]
     Active Substance: BETAINE
     Dosage: 1 GRAM, QID, ORAL POWDER
     Route: 048
     Dates: start: 20150213, end: 20150310
  6. CYSTADANE [Suspect]
     Active Substance: BETAINE
     Dosage: 1 GRAM, QID, ORAL POWDER
     Route: 048
     Dates: start: 20150316, end: 20150706
  7. CYSTADANE [Suspect]
     Active Substance: BETAINE
     Dosage: 1 GRAM, QID, ORAL POWDER
     Route: 048
     Dates: start: 20150720, end: 201607
  8. CYSTADANE [Suspect]
     Active Substance: BETAINE
     Dosage: 1 GRAM, QID, ORAL POWDER
     Route: 048
     Dates: start: 20160712, end: 201707
  9. CYSTADANE [Suspect]
     Active Substance: BETAINE
     Dosage: 1 GRAM, QID, ORAL POWDER
     Route: 048
     Dates: start: 20170705, end: 20170828
  10. CYSTADANE [Suspect]
     Active Substance: BETAINE
     Dosage: 1 GRAM, QID, ORAL POWDER
     Route: 048
     Dates: start: 20171114, end: 20180928
  11. CYSTADANE [Suspect]
     Active Substance: BETAINE
     Dosage: 1 GRAM, QID
     Route: 048
     Dates: start: 20190129, end: 20190513
  12. CYSTADANE [Suspect]
     Active Substance: BETAINE
     Dosage: 3 GRAM, BID
     Route: 048
     Dates: start: 20191107, end: 202011
  13. CYSTADANE [Suspect]
     Active Substance: BETAINE
     Dosage: 3 GRAM, BID
     Route: 048
     Dates: start: 20201104, end: 202110
  14. CYSTADANE [Suspect]
     Active Substance: BETAINE
     Dosage: 3 GRAM, BID, ORAL POWDER
     Dates: start: 20211014, end: 20221017
  15. CYSTADANE [Suspect]
     Active Substance: BETAINE
     Dosage: 3 GRAM, BID, ORAL POWDER
     Dates: end: 20230929
  16. CYSTADANE [Suspect]
     Active Substance: BETAINE
     Dosage: 3 GRAM, BID, ORAL POWDER
     Dates: end: 20240920
  17. CYSTADANE [Suspect]
     Active Substance: BETAINE
     Dosage: 3 GRAM, BID, ORAL POWDER
     Dates: start: 2024
  18. DUOCAL [Concomitant]
     Indication: Product used for unknown indication
     Route: 048
     Dates: start: 20070926
  19. HYDROXOCOBALAMIN [Concomitant]
     Active Substance: HYDROXOCOBALAMIN
     Indication: Product used for unknown indication
     Route: 030
     Dates: start: 20070926
  20. LEVOCARNITINE [Concomitant]
     Active Substance: LEVOCARNITINE
     Indication: Product used for unknown indication
     Dosage: 15 MILLILITER, BID VIA OR ROUTE
     Route: 048
     Dates: start: 20070926
  21. METHIONINE [Concomitant]
     Active Substance: METHIONINE
     Indication: Product used for unknown indication
     Route: 048
     Dates: start: 20070926
  22. METANX [Concomitant]
     Active Substance: LEVOMEFOLATE CALCIUM\METHYLCOBALAMIN\PYRIDOXAL PHOSPHATE ANHYDROUS
     Indication: Product used for unknown indication
     Dosage: (3-90.314-2-35), BID (TWICE A DAY) VIA OR ROUTE
     Route: 048
     Dates: start: 20070926
  23. NEOCATE JUNIOR [Concomitant]
     Indication: Product used for unknown indication
     Route: 048
     Dates: start: 20070926
  24. FERROUS SULFATE [Concomitant]
     Active Substance: FERROUS SULFATE
     Indication: Product used for unknown indication
     Route: 048
     Dates: start: 20070926, end: 20191108
  25. SINGULAIR [Concomitant]
     Active Substance: MONTELUKAST SODIUM
     Indication: Product used for unknown indication
     Route: 048
     Dates: start: 20090326
  26. ALBUTEROL SULFATE [Concomitant]
     Active Substance: ALBUTEROL SULFATE
     Indication: Product used for unknown indication
     Dates: start: 20090326
  27. VITAMIN D [Concomitant]
     Active Substance: VITAMIN D NOS
     Indication: Product used for unknown indication
     Dosage: 5000 UNIT, Q1W
     Route: 048
     Dates: start: 20120101
  28. KEPPRA [Concomitant]
     Active Substance: LEVETIRACETAM
     Indication: Seizure
     Dosage: 500 MG (5ML), BID, 100 MG/ML ORAL SOUTION
     Route: 048
     Dates: start: 20230320
  29. KEPPRA [Concomitant]
     Active Substance: LEVETIRACETAM
     Dosage: 9 MILLILITER, BID
  30. LACOSAMIDE [Concomitant]
     Active Substance: LACOSAMIDE
     Indication: Product used for unknown indication
     Dosage: 10 MILLILITER, BID (10 MG/ML)
     Route: 048
     Dates: start: 20240423
  31. CLOBAZAM [Concomitant]
     Active Substance: CLOBAZAM
     Indication: Product used for unknown indication
     Dosage: 2.5 2 ML MG/ML, ORAL SUSPENSION
     Route: 048
     Dates: start: 20240510
  32. VYVANSE [Concomitant]
     Active Substance: LISDEXAMFETAMINE DIMESYLATE
     Indication: Product used for unknown indication
     Route: 048
     Dates: start: 20160922
  33. VIMPAT [Concomitant]
     Active Substance: LACOSAMIDE
     Indication: Seizure
     Dosage: 15 MILLILITER, BID
  34. KLONOPIN [Concomitant]
     Active Substance: CLONAZEPAM
     Indication: Seizure
     Dosage: 0.50 MILLIGRAM, BID

REACTIONS (8)
  - Escherichia urinary tract infection [Recovered/Resolved with Sequelae]
  - Mental status changes [Recovered/Resolved with Sequelae]
  - Status epilepticus [Recovered/Resolved]
  - Sepsis [Recovered/Resolved with Sequelae]
  - Hypervolaemia [Unknown]
  - Gastrointestinal haemorrhage [Recovered/Resolved with Sequelae]
  - Blood homocysteine increased [Unknown]
  - Off label use [Recovered/Resolved]

NARRATIVE: CASE EVENT DATE: 20240101
